FAERS Safety Report 6929489-0 (Version None)
Quarter: 2010Q3

REPORT INFORMATION
  Report Type: 
  Country: None (occurrence: None)
  Receive Date: 20100818
  Receipt Date: 20100810
  Transmission Date: 20110219
  Serious: No
  Sender: FDA-Public Use
  Company Number: US-BIOGENIDEC-2010BI027960

PATIENT
  Sex: Female

DRUGS (2)
  1. TYSABRI [Suspect]
     Indication: MULTIPLE SCLEROSIS
     Route: 042
     Dates: start: 20061114, end: 20100127
  2. TYSABRI [Suspect]
     Route: 042
     Dates: start: 20100528

REACTIONS (5)
  - BODY TEMPERATURE FLUCTUATION [None]
  - FALL [None]
  - FATIGUE [None]
  - HEPATIC ENZYME ABNORMAL [None]
  - LOSS OF CONTROL OF LEGS [None]
